FAERS Safety Report 13357915 (Version 6)
Quarter: 2017Q4

REPORT INFORMATION
  Report Type: Spontaneous
  Country: US (occurrence: US)
  Receive Date: 20170322
  Receipt Date: 20171018
  Transmission Date: 20180320
  Serious: Yes (Hospitalization, Other)
  Sender: FDA-Public Use
  Company Number: US-PFIZER INC-2017118792

PATIENT
  Age: 78 Year
  Sex: Female
  Weight: 75.28 kg

DRUGS (4)
  1. IBRANCE [Suspect]
     Active Substance: PALBOCICLIB
     Dosage: 125 MG, CYCLIC (DAYS 1-21 Q28 DAYS)
     Route: 048
  2. IBRANCE [Suspect]
     Active Substance: PALBOCICLIB
     Indication: BREAST CANCER METASTATIC
     Dosage: 125 MG, CYCLIC (DAYS 1-21 Q28 DAYS)
     Route: 048
     Dates: start: 20170303
  3. IBRANCE [Suspect]
     Active Substance: PALBOCICLIB
     Dosage: 125 MG, CYCLIC (DAYS 1-21 Q28 DAYS)
     Route: 048
     Dates: end: 201710
  4. IBRANCE [Suspect]
     Active Substance: PALBOCICLIB
     Dosage: 125 MG, CYCLIC (DAYS 1-21 Q28 DAYS)
     Route: 048

REACTIONS (10)
  - Joint injury [Unknown]
  - Fatigue [Unknown]
  - Drug level below therapeutic [Unknown]
  - Volume blood decreased [Unknown]
  - Full blood count decreased [Unknown]
  - Malaise [Unknown]
  - Cataract [Unknown]
  - Nasopharyngitis [Unknown]
  - Fall [Unknown]
  - Lacrimation increased [Unknown]
